FAERS Safety Report 4350551-3 (Version None)
Quarter: 2004Q2

REPORT INFORMATION
  Report Type: 
  Country: None (occurrence: None)
  Receive Date: 20040427
  Receipt Date: 20040413
  Transmission Date: 20050107
  Serious: Yes (Hospitalization)
  Sender: FDA-Public Use
  Company Number: 2004-BP-01355BP

PATIENT
  Age: 89 Year
  Sex: Female
  Weight: 63.5 kg

DRUGS (6)
  1. AGGRENOX [Suspect]
     Indication: CEREBROVASCULAR ACCIDENT PROPHYLAXIS
     Dosage: SEE TEXT (SEE TEXT, 25MG/200 MG 1CAPSULE BID), PO
     Route: 048
     Dates: end: 20031120
  2. AGGRENOX [Suspect]
     Indication: PROPHYLAXIS
     Dosage: SEE TEXT (SEE TEXT, 25MG/200 MG 1CAPSULE BID), PO
     Route: 048
     Dates: end: 20031120
  3. AGGRENOX [Suspect]
     Indication: TRANSIENT ISCHAEMIC ATTACK
     Dosage: SEE TEXT (SEE TEXT, 25MG/200 MG 1CAPSULE BID), PO
     Route: 048
     Dates: end: 20031120
  4. PREVACID [Concomitant]
  5. KEPPRA [Concomitant]
  6. HERBAL MEDICATIONS [Concomitant]

REACTIONS (8)
  - ANAEMIA [None]
  - COLONIC POLYP [None]
  - CONVULSION [None]
  - GASTRITIS [None]
  - GASTROINTESTINAL HAEMORRHAGE [None]
  - RECTAL HAEMORRHAGE [None]
  - STOMACH DISCOMFORT [None]
  - TUMOUR HAEMORRHAGE [None]
